FAERS Safety Report 7068928-4 (Version None)
Quarter: 2010Q4

REPORT INFORMATION
  Report Type: 
  Country: None (occurrence: None)
  Receive Date: 20101028
  Receipt Date: 20101019
  Transmission Date: 20110411
  Serious: Yes (Other)
  Sender: FDA-Public Use
  Company Number: PHHO2010DE15843

PATIENT
  Sex: Male
  Weight: 135 kg

DRUGS (6)
  1. BLINDED ALISKIREN ALI+TAB+CF [Suspect]
     Indication: CARDIAC FAILURE
     Dosage: CODE NOT BROKEN
     Route: 048
     Dates: start: 20100407
  2. ENALAPRIL MALEATE [Suspect]
     Indication: CARDIAC FAILURE
     Dosage: CODE NOT BROKEN
     Route: 048
     Dates: start: 20100407
  3. BLINDED NO TREATMENT RECEIVED NOMED [Suspect]
     Indication: CARDIAC FAILURE
     Dosage: CODE NOT BROKEN
     Route: 048
     Dates: start: 20100407
  4. COMPARATOR ENALAPRIL [Suspect]
     Indication: CARDIAC FAILURE
  5. ALISKIREN [Suspect]
     Indication: CARDIAC FAILURE
     Dosage: UNK
  6. INSPRA [Suspect]
     Indication: CARDIAC FAILURE
     Dosage: UNK
     Dates: start: 20090601, end: 20101001

REACTIONS (3)
  - DIZZINESS [None]
  - DYSPNOEA EXERTIONAL [None]
  - HYPOTENSION [None]
